FAERS Safety Report 12774217 (Version 2)
Quarter: 2017Q1

REPORT INFORMATION
  Report Type: Spontaneous
  Country: US (occurrence: US)
  Receive Date: 20160923
  Receipt Date: 20170306
  Transmission Date: 20170428
  Serious: No
  Sender: FDA-Public Use
  Company Number: US-PFIZER INC-2016314600

PATIENT
  Age: 68 Year
  Sex: Female
  Weight: 89 kg

DRUGS (12)
  1. METOPROLOL SUCCINATE. [Concomitant]
     Active Substance: METOPROLOL SUCCINATE
     Dosage: 100 MG, 1X/DAY
     Dates: start: 20140522
  2. TORSEMIDE. [Concomitant]
     Active Substance: TORSEMIDE
     Dosage: 20 MG, 1X/DAY
     Route: 048
     Dates: start: 20140522
  3. AROMASIN [Suspect]
     Active Substance: EXEMESTANE
     Indication: CHEMOTHERAPY
  4. FLUTICASONE FUROATE [Concomitant]
     Active Substance: FLUTICASONE FUROATE
     Dosage: UNK, AS NEEDED(27.5 MCG/SPRAY)
     Route: 045
     Dates: start: 20160105
  5. DIGOXIN. [Concomitant]
     Active Substance: DIGOXIN
     Dosage: 0.25 MG, 1X/DAY
     Route: 048
     Dates: start: 20031027
  6. LOSARTAN POTASSIUM ACCORD [Concomitant]
     Dosage: 100 MG, 1X/DAY
     Route: 048
     Dates: start: 20140522
  7. POTASSIUM CHLORIDE. [Concomitant]
     Active Substance: POTASSIUM CHLORIDE
     Dosage: 10 MEQ, 2X/DAY
     Route: 048
     Dates: start: 20150224
  8. METFORMIN HCL [Concomitant]
     Active Substance: METFORMIN HYDROCHLORIDE
     Dosage: 500 MG, 2X/DAY
     Route: 048
     Dates: start: 201608
  9. PRADAXA [Concomitant]
     Active Substance: DABIGATRAN ETEXILATE MESYLATE
     Dosage: 150 MG, 2X/DAY
     Route: 048
     Dates: start: 201307
  10. AZELASTINE [Concomitant]
     Active Substance: AZELASTINE
     Dosage: 0.1 %, 2X/DAY
     Route: 045
     Dates: start: 20160105
  11. AROMASIN [Suspect]
     Active Substance: EXEMESTANE
     Indication: BREAST CANCER
     Dosage: 25 MG, 1X/DAY
     Route: 048
     Dates: start: 201401
  12. LORATADINE. [Concomitant]
     Active Substance: LORATADINE
     Dosage: 10 MG, 1X/DAY
     Route: 048
     Dates: start: 20160105

REACTIONS (8)
  - Feeling abnormal [Not Recovered/Not Resolved]
  - Nasopharyngitis [Unknown]
  - Alopecia [Unknown]
  - Bone pain [Unknown]
  - Disturbance in attention [Unknown]
  - Confusional state [Not Recovered/Not Resolved]
  - Fine motor skill dysfunction [Unknown]
  - Cognitive disorder [Not Recovered/Not Resolved]

NARRATIVE: CASE EVENT DATE: 201401
